FAERS Safety Report 14881000 (Version 1)
Quarter: 2018Q2

REPORT INFORMATION
  Report Type: Spontaneous
  Country: US (occurrence: US)
  Receive Date: 20180511
  Receipt Date: 20180511
  Transmission Date: 20180711
  Serious: Yes (Other)
  Sender: FDA-Public Use
  Company Number: US-CIPLA LTD.-2017US16069

PATIENT

DRUGS (1)
  1. TOPIRAMATE. [Suspect]
     Active Substance: TOPIRAMATE
     Dosage: 25 MG, UNK
     Route: 048
     Dates: start: 201701

REACTIONS (2)
  - Dizziness [Unknown]
  - Blindness transient [Unknown]

NARRATIVE: CASE EVENT DATE: 2017
